FAERS Safety Report 10026474 (Version 1)
Quarter: 2014Q1

REPORT INFORMATION
  Report Type: Spontaneous
  Country: US (occurrence: US)
  Receive Date: 20140321
  Receipt Date: 20140321
  Transmission Date: 20141002
  Serious: Yes (Hospitalization)
  Sender: FDA-Public Use
  Company Number: US-ROCHE-1363151

PATIENT
  Sex: Male

DRUGS (1)
  1. KLONOPIN [Suspect]
     Indication: PRODUCT USED FOR UNKNOWN INDICATION
     Dosage: GIVEN TO MOTHER IN LAST TRIMINISTER FOR SEIZURES AND ANXIETY: DEC/2013
     Route: 064

REACTIONS (12)
  - Drug withdrawal syndrome neonatal [Unknown]
  - Foetal exposure during pregnancy [Unknown]
  - Musculoskeletal stiffness [Unknown]
  - Nightmare [Unknown]
  - Insomnia [Unknown]
  - Tremor [Unknown]
  - Exaggerated startle response [Unknown]
  - Crying [Unknown]
  - Feeding disorder [Unknown]
  - Weight decreased [Unknown]
  - Body temperature increased [Unknown]
  - Pain [Unknown]
